FAERS Safety Report 17109619 (Version 9)
Quarter: 2024Q1

REPORT INFORMATION
  Report Type: Spontaneous
  Country: FR (occurrence: FR)
  Receive Date: 20191204
  Receipt Date: 20240123
  Transmission Date: 20240409
  Serious: Yes (Hospitalization, Other)
  Sender: FDA-Public Use
  Company Number: FR-MYLANLABS-2019M1114992

PATIENT
  Age: 58 Year
  Sex: Female

DRUGS (5)
  1. DARUNAVIR [Interacting]
     Active Substance: DARUNAVIR
     Indication: Antiretroviral therapy
     Dosage: 800 MILLIGRAM
     Route: 048
  2. DARUNAVIR [Interacting]
     Active Substance: DARUNAVIR
     Indication: HIV infection
  3. QUETIAPINE [Interacting]
     Active Substance: QUETIAPINE
     Indication: Bipolar disorder
     Dosage: 150 MILLIGRAM, ONCE A DAY,PROLONGED RELEASE FORM; A LONG-TERM TREATMENT
     Route: 065
  4. RITONAVIR [Interacting]
     Active Substance: RITONAVIR
     Indication: HIV infection
     Dosage: 100 MILLIGRAM (BOOSTED BY 100MG)
     Route: 065
  5. RITONAVIR [Interacting]
     Active Substance: RITONAVIR
     Indication: Antiretroviral therapy

REACTIONS (10)
  - Syncope [Unknown]
  - Psychomotor skills impaired [Unknown]
  - Drug interaction [Unknown]
  - Electrocardiogram QT prolonged [Unknown]
  - Psychomotor retardation [Unknown]
  - Overdose [Unknown]
  - Labelled drug-drug interaction medication error [Unknown]
  - Off label use [Unknown]
  - Contraindicated product administered [Unknown]
  - Treatment noncompliance [Unknown]
